APPROVED DRUG PRODUCT: PSEUDOEPHEDRINE HYDROCHLORIDE
Active Ingredient: PSEUDOEPHEDRINE HYDROCHLORIDE
Strength: 240MG
Dosage Form/Route: TABLET, EXTENDED RELEASE;ORAL
Application: A218854 | Product #001
Applicant: AUROBINDO PHARMA LTD
Approved: Dec 29, 2025 | RLD: No | RS: Yes | Type: OTC